FAERS Safety Report 9826798 (Version 2)
Quarter: 2014Q2

REPORT INFORMATION
  Report Type: Spontaneous
  Country: US (occurrence: US)
  Receive Date: 20140117
  Receipt Date: 20140501
  Transmission Date: 20141212
  Serious: No
  Sender: FDA-Public Use
  Company Number: US-BIOGENIDEC-2014BI003806

PATIENT
  Age: 41 Year
  Sex: Female

DRUGS (3)
  1. TECFIDERA [Suspect]
     Indication: MULTIPLE SCLEROSIS
     Route: 048
     Dates: start: 20131204, end: 20140107
  2. TECFIDERA [Suspect]
     Indication: MULTIPLE SCLEROSIS
     Route: 048
     Dates: start: 20140107
  3. TECFIDERA [Suspect]
     Indication: MULTIPLE SCLEROSIS
     Route: 048
     Dates: start: 201401

REACTIONS (9)
  - Gastrooesophageal reflux disease [Unknown]
  - Night sweats [Unknown]
  - Influenza [Unknown]
  - Intentional product misuse [Unknown]
  - Prescribed underdose [Not Recovered/Not Resolved]
  - Nasopharyngitis [Unknown]
  - Abdominal pain upper [Unknown]
  - Pruritus [Unknown]
  - Flushing [Unknown]
